FAERS Safety Report 6486724-3 (Version None)
Quarter: 2009Q4

REPORT INFORMATION
  Report Type: 
  Country: None (occurrence: None)
  Receive Date: 20091210
  Receipt Date: 20091109
  Transmission Date: 20100525
  Serious: No
  Sender: FDA-Public Use
  Company Number: JP-ROCHE-673607

PATIENT
  Age: 5 Year

DRUGS (1)
  1. TAMIFLU [Suspect]
     Indication: DRUG USE FOR UNKNOWN INDICATION
     Dosage: DOSE FORM: ORAL FORMULATION (NOT OTHERWISE SPECIFIED). NOTE: 3TIMES DOSE.
     Route: 048

REACTIONS (2)
  - OVERDOSE [None]
  - VOMITING [None]
